FAERS Safety Report 11529696 (Version 1)
Quarter: 2015Q3

REPORT INFORMATION
  Report Type: Other
  Country: DE (occurrence: DE)
  Receive Date: 20150921
  Receipt Date: 20150921
  Transmission Date: 20151125
  Serious: Yes (Other)
  Sender: FDA-Public Use
  Company Number: DE-MYLANLABS-2015M1030536

PATIENT

DRUGS (1)
  1. RISPERIDON 3 MG [Suspect]
     Active Substance: RISPERIDONE
     Indication: SCHIZOPHRENIA
     Dosage: UNK
     Route: 048
     Dates: end: 2015

REACTIONS (4)
  - Weight increased [Not Recovered/Not Resolved]
  - Apathy [Unknown]
  - Musculoskeletal stiffness [Recovering/Resolving]
  - Nocturia [Recovered/Resolved]
